FAERS Safety Report 21578365 (Version 1)
Quarter: 2022Q4

REPORT INFORMATION
  Report Type: Spontaneous
  Country: DE (occurrence: DE)
  Receive Date: 20221110
  Receipt Date: 20221110
  Transmission Date: 20230112
  Serious: Yes (Other)
  Sender: FDA-Public Use
  Company Number: DE-UCBSA-2022064402

PATIENT
  Age: 27 Year
  Sex: Female

DRUGS (12)
  1. KEPPRA [Suspect]
     Active Substance: LEVETIRACETAM
     Indication: Epilepsy
     Dosage: 750 MILLIGRAM, 2X/DAY (BID)
     Dates: start: 2003, end: 2015
  2. KEPPRA [Suspect]
     Active Substance: LEVETIRACETAM
     Dosage: 125-0-250MG (BID)
     Dates: start: 2015, end: 2016
  3. KEPPRA [Suspect]
     Active Substance: LEVETIRACETAM
     Dosage: 1000 MILLIGRAM, 2X/DAY (BID)
     Dates: start: 2016, end: 2017
  4. VIMPAT [Suspect]
     Active Substance: LACOSAMIDE
     Indication: Epilepsy
     Dosage: 150 MILLIGRAM, 2X/DAY (BID)
     Dates: start: 2016, end: 2017
  5. VIMPAT [Suspect]
     Active Substance: LACOSAMIDE
     Dosage: 200 MILLIGRAM, 2X/DAY (BID)
     Dates: start: 2017, end: 2019
  6. BRIVIACT [Suspect]
     Active Substance: BRIVARACETAM
     Indication: Epilepsy
     Dosage: 100 MILLIGRAM, 2X/DAY (BID)
     Dates: start: 2018
  7. SULTHIAME [Concomitant]
     Active Substance: SULTHIAME
     Indication: Epilepsy
     Dosage: 300 MILLIGRAM, DAILY
     Dates: start: 2001, end: 2003
  8. SULTHIAME [Concomitant]
     Active Substance: SULTHIAME
     Dosage: 100 MILLIGRAM, 2X/DAY (BID)
     Dates: start: 2003, end: 2008
  9. CLOBAZAM [Concomitant]
     Active Substance: CLOBAZAM
     Indication: Epilepsy
     Dosage: 10 MILLIGRAM, DAILY
     Dates: start: 2004, end: 2019
  10. CLOBAZAM [Concomitant]
     Active Substance: CLOBAZAM
     Dosage: 5-0-10MG
     Dates: start: 2019, end: 2020
  11. CLOBAZAM [Concomitant]
     Active Substance: CLOBAZAM
     Dosage: 10-0-20MG
     Dates: start: 2020
  12. STIRIPENTOL [Concomitant]
     Active Substance: STIRIPENTOL
     Indication: Epilepsy
     Dosage: UNK
     Dates: start: 2020

REACTIONS (3)
  - Seizure [Not Recovered/Not Resolved]
  - Therapeutic product effect incomplete [Unknown]
  - Product use issue [Unknown]

NARRATIVE: CASE EVENT DATE: 20150101
